FAERS Safety Report 20136279 (Version 1)
Quarter: 2021Q4

REPORT INFORMATION
  Report Type: Spontaneous
  Country: US (occurrence: None)
  Receive Date: 20211130
  Receipt Date: 20211130
  Transmission Date: 20220303
  Serious: No
  Sender: FDA-Public Use
  Company Number: None

PATIENT
  Age: 8 Year
  Sex: Female
  Weight: 53.52 kg

DRUGS (1)
  1. LUMIZYME [Suspect]
     Active Substance: ALGLUCOSIDASE ALFA
     Indication: Glycogen storage disease type II
     Dosage: FREQUENCY : WEEKLY;?
     Route: 042

REACTIONS (5)
  - Abdominal pain upper [None]
  - Headache [None]
  - Face oedema [None]
  - Oropharyngeal pain [None]
  - Therapy cessation [None]

NARRATIVE: CASE EVENT DATE: 20211008
